FAERS Safety Report 7756319-X (Version None)
Quarter: 2011Q3

REPORT INFORMATION
  Report Type: 
  Country: None (occurrence: None)
  Receive Date: 20110916
  Receipt Date: 20110909
  Transmission Date: 20111222
  Serious: Yes (Other)
  Sender: FDA-Public Use
  Company Number: AU-BRISTOL-MYERS SQUIBB COMPANY-15893563

PATIENT
  Age: 68 Year
  Sex: Male

DRUGS (2)
  1. ERBITUX [Suspect]
     Indication: COLON CANCER METASTATIC
     Dosage: STRENGTH:5MG/ML VIAL THERAPY DATES:18JUL11
  2. CELEBREX [Concomitant]

REACTIONS (1)
  - STEVENS-JOHNSON SYNDROME [None]
